FAERS Safety Report 21728581 (Version 1)
Quarter: 2022Q4

REPORT INFORMATION
  Report Type: Spontaneous
  Country: US (occurrence: None)
  Receive Date: 20221214
  Receipt Date: 20221214
  Transmission Date: 20230113
  Serious: Yes (Other)
  Sender: FDA-Public Use
  Company Number: None

PATIENT
  Age: 75 Year
  Weight: 95.25 kg

DRUGS (2)
  1. KETOCONAZOLE [Suspect]
     Active Substance: KETOCONAZOLE
     Dosage: FREQUENCY : TWICE A DAY;?OTHER ROUTE : APPLIED AS MEDICATED PATCH TO SKIN;?
     Route: 050
     Dates: start: 20221203
  2. ALLOPURINOL [Suspect]
     Active Substance: ALLOPURINOL

REACTIONS (4)
  - Skin discolouration [None]
  - Skin exfoliation [None]
  - Blister [None]
  - Rash [None]

NARRATIVE: CASE EVENT DATE: 20221126
